FAERS Safety Report 7357346-7 (Version None)
Quarter: 2011Q1

REPORT INFORMATION
  Report Type: 
  Country: None (occurrence: None)
  Receive Date: 20110307
  Receipt Date: 20110224
  Transmission Date: 20110831
  Serious: Yes (Hospitalization)
  Sender: FDA-Public Use
  Company Number: 840059

PATIENT
  Age: 63 Year
  Sex: Female

DRUGS (4)
  1. GEMCITABINE HYDROCHLORIDE [Suspect]
     Indication: METASTASES TO LIVER
     Dosage: 1,000 MG/M^2 WEEKLY
  2. GEMCITABINE HYDROCHLORIDE [Suspect]
     Indication: PANCREATIC CARCINOMA
     Dosage: 1,000 MG/M^2 WEEKLY
  3. ERLOTINIB HYDROCHLORIDE [Suspect]
     Indication: METASTASES TO LIVER
     Dosage: 100 MG DAILY
  4. ERLOTINIB HYDROCHLORIDE [Suspect]
     Indication: PANCREATIC CARCINOMA
     Dosage: 100 MG DAILY

REACTIONS (4)
  - HEPATIC FAILURE [None]
  - ORGANISING PNEUMONIA [None]
  - PANCREATIC CARCINOMA [None]
  - NEOPLASM MALIGNANT [None]
